FAERS Safety Report 18263797 (Version 2)
Quarter: 2020Q4

REPORT INFORMATION
  Report Type: Spontaneous
  Country: CH (occurrence: CH)
  Receive Date: 20200914
  Receipt Date: 20201006
  Transmission Date: 20210113
  Serious: Yes (Other)
  Sender: FDA-Public Use
  Company Number: CH-PFIZER INC-2020351277

PATIENT
  Age: 70 Year
  Sex: Male
  Weight: 80 kg

DRUGS (3)
  1. PRIVIGEN [Suspect]
     Active Substance: HUMAN IMMUNOGLOBULIN G
     Dosage: UNK, CYCLIC (MONTHLY) (FOURTH CYCLE ON 07/27/2020; 2 G / KG PER DAY FOR 5 DAYS)
     Route: 042
     Dates: start: 20200727
  2. ARZERRA [Suspect]
     Active Substance: OFATUMUMAB
     Indication: AUTOIMMUNE ENCEPHALOPATHY
     Dosage: 300 MG
     Route: 041
     Dates: start: 20200527
  3. SOLU-MEDROL [Suspect]
     Active Substance: METHYLPREDNISOLONE SODIUM SUCCINATE
     Indication: AUTOIMMUNE ENCEPHALOPATHY
     Dosage: 500 MG, 1X/DAY
     Route: 041
     Dates: start: 20200527, end: 20200528

REACTIONS (1)
  - Portal vein thrombosis [Not Recovered/Not Resolved]

NARRATIVE: CASE EVENT DATE: 20200828
